FAERS Safety Report 18351817 (Version 2)
Quarter: 2020Q4

REPORT INFORMATION
  Report Type: Spontaneous
  Country: US (occurrence: US)
  Receive Date: 20201006
  Receipt Date: 20201112
  Transmission Date: 20210114
  Serious: No
  Sender: FDA-Public Use
  Company Number: US-PFIZER INC-2020384861

PATIENT
  Age: 55 Year
  Sex: Female

DRUGS (2)
  1. XELJANZ XR [Suspect]
     Active Substance: TOFACITINIB CITRATE
     Indication: RHEUMATOID ARTHRITIS
     Dosage: 11 MG, DAILY
     Route: 048
     Dates: start: 2019
  2. XELJANZ XR [Suspect]
     Active Substance: TOFACITINIB CITRATE
     Dosage: 11 MG, DAILY
     Route: 048

REACTIONS (11)
  - Diarrhoea [Not Recovered/Not Resolved]
  - Abdominal pain [Not Recovered/Not Resolved]
  - Weight decreased [Not Recovered/Not Resolved]
  - Oropharyngeal pain [Not Recovered/Not Resolved]
  - Pain [Not Recovered/Not Resolved]
  - Aphonia [Recovering/Resolving]
  - Decreased appetite [Not Recovered/Not Resolved]
  - Pyrexia [Not Recovered/Not Resolved]
  - Arthralgia [Not Recovered/Not Resolved]
  - Vomiting [Not Recovered/Not Resolved]
  - Sensitivity to weather change [Not Recovered/Not Resolved]

NARRATIVE: CASE EVENT DATE: 202011
